FAERS Safety Report 7473854-2 (Version None)
Quarter: 2011Q2

REPORT INFORMATION
  Report Type: 
  Country: None (occurrence: None)
  Receive Date: 20110503
  Receipt Date: 20110419
  Transmission Date: 20111010
  Serious: Yes (Other)
  Sender: FDA-Public Use
  Company Number: 2011SP017895

PATIENT
  Age: 53 Year
  Sex: Male

DRUGS (2)
  1. RADIOTHERAPY [Concomitant]
  2. TEMODAL [Suspect]
     Indication: GLIOMA
     Dosage: 75MG/M2;QD;PO, 150 MG/M2;QD;PO
     Route: 048
     Dates: start: 20110201

REACTIONS (1)
  - DEAFNESS [None]
